FAERS Safety Report 9885667 (Version 2)
Quarter: 2014Q1

REPORT INFORMATION
  Report Type: Spontaneous
  Country: US (occurrence: US)
  Receive Date: 20140210
  Receipt Date: 20140210
  Transmission Date: 20141002
  Serious: Yes (Other)
  Sender: FDA-Public Use
  Company Number: US-GILEAD-2011-0037125

PATIENT
  Sex: Male
  Weight: 59.87 kg

DRUGS (11)
  1. VIREAD [Suspect]
     Indication: HIV INFECTION
     Dosage: 300 MG, Q1WK
     Dates: end: 201010
  2. VIREAD [Suspect]
     Dosage: 300 UNK, UNK
     Dates: start: 201010
  3. EMTRICITABINE [Concomitant]
     Indication: HIV INFECTION
     Route: 048
  4. EFAVIRENZ [Concomitant]
     Indication: HIV INFECTION
  5. METOPROLOL TARTRATE [Concomitant]
  6. TACROLIMUS [Concomitant]
     Route: 048
  7. AMLODIPINE [Concomitant]
     Route: 048
  8. ASPIRIN [Concomitant]
     Route: 048
  9. PRENATAL VITAMINS [Concomitant]
  10. PREDNISONE [Concomitant]
     Dosage: 5 MG, QD
     Route: 048
  11. MAGIC MOUTH FLUSH(LIDOCAINE/DIPHENHYDRAMNINE/ AL HYDROX/MG HYDROX/SIM) [Concomitant]

REACTIONS (1)
  - Renal failure [Not Recovered/Not Resolved]
